FAERS Safety Report 6328420-9 (Version None)
Quarter: 2009Q3

REPORT INFORMATION
  Report Type: 
  Country: None (occurrence: None)
  Receive Date: 20090825
  Receipt Date: 20090320
  Transmission Date: 20100115
  Serious: No
  Sender: FDA-Public Use
  Company Number: US-ABBOTT-09P-163-0564163-00

PATIENT
  Sex: Female
  Weight: 79.45 kg

DRUGS (3)
  1. SYNTHROID [Suspect]
     Indication: BASEDOW'S DISEASE
     Route: 048
     Dates: start: 19980601
  2. LITHIUM CARBONATE [Concomitant]
     Indication: BIPOLAR DISORDER
     Route: 048
  3. DETROL [Concomitant]
     Indication: URINARY INCONTINENCE
     Route: 048

REACTIONS (3)
  - ARTHRALGIA [None]
  - HOT FLUSH [None]
  - WEIGHT INCREASED [None]
